FAERS Safety Report 4472765-4 (Version None)
Quarter: 2004Q4

REPORT INFORMATION
  Report Type: 
  Country: None (occurrence: None)
  Receive Date: 20041012
  Receipt Date: 20041012
  Transmission Date: 20050328
  Serious: No
  Sender: FDA-Public Use
  Company Number: None

PATIENT
  Age: 18 Year
  Sex: Male
  Weight: 58.0604 kg

DRUGS (1)
  1. LEVAQUIN [Suspect]
     Indication: BRONCHITIS
     Dosage: 1 A DAY ORAL
     Route: 048
     Dates: start: 20041007, end: 20041017

REACTIONS (8)
  - AGGRESSION [None]
  - CONFUSIONAL STATE [None]
  - DIFFICULTY IN WALKING [None]
  - FEELING ABNORMAL [None]
  - MORBID THOUGHTS [None]
  - PHOTOPHOBIA [None]
  - SUICIDAL IDEATION [None]
  - TREMOR [None]
